FAERS Safety Report 7946022-5 (Version None)
Quarter: 2011Q4

REPORT INFORMATION
  Report Type: 
  Country: None (occurrence: None)
  Receive Date: 20111122
  Receipt Date: 20111108
  Transmission Date: 20120403
  Serious: Yes (Hospitalization)
  Sender: FDA-Public Use
  Company Number: 2011SP052469

PATIENT
  Age: 73 Year
  Sex: Female
  Weight: 52 kg

DRUGS (12)
  1. BEVACIZUMAB (BEVACIZUMAB) [Suspect]
     Indication: GLIOBLASTOMA
     Dosage: 10 MG/KG
     Dates: start: 20110330, end: 20110413
  2. MEDROL [Concomitant]
  3. ATHYMIL [Concomitant]
  4. TEMOZOLOMIDE [Suspect]
     Indication: GLIOBLASTOMA
     Dosage: 110MG/M2; PO
     Route: 048
     Dates: start: 20110520
  5. TEMOZOLOMIDE [Suspect]
     Indication: GLIOBLASTOMA
     Dosage: 110MG/M2; PO
     Route: 048
     Dates: start: 20110330, end: 20110513
  6. LOVENOX [Concomitant]
  7. BACTRIM [Concomitant]
  8. KEPPRA [Concomitant]
  9. LEUCOVORIN CALCIUM [Concomitant]
  10. ALPRAZOLAM [Concomitant]
  11. PREDNISONE TAB [Concomitant]
  12. HALDOL [Concomitant]

REACTIONS (4)
  - HEPATOTOXICITY [None]
  - RECTAL HAEMORRHAGE [None]
  - LIVER DISORDER [None]
  - ABNORMAL BEHAVIOUR [None]
